FAERS Safety Report 26144557 (Version 1)
Quarter: 2025Q4

REPORT INFORMATION
  Report Type: Spontaneous
  Country: US (occurrence: None)
  Receive Date: 20251211
  Receipt Date: 20251211
  Transmission Date: 20260118
  Serious: Yes (Hospitalization)
  Sender: FDA-CTU
  Company Number: None

PATIENT
  Age: 81 Year
  Sex: Female
  Weight: 48.9 kg

DRUGS (2)
  1. DARATUMUMAB\HYALURONIDASE-FIHJ [Suspect]
     Active Substance: DARATUMUMAB\HYALURONIDASE-FIHJ
     Dates: start: 20251125
  2. LENALIDOMIDE [Suspect]
     Active Substance: LENALIDOMIDE
     Dates: end: 20251208

REACTIONS (9)
  - Abdominal pain [None]
  - Nausea [None]
  - Vomiting [None]
  - Diarrhoea [None]
  - Cold sweat [None]
  - Pyrexia [None]
  - Dizziness [None]
  - Fatigue [None]
  - Gait disturbance [None]

NARRATIVE: CASE EVENT DATE: 20251209
